FAERS Safety Report 7653638-2 (Version None)
Quarter: 2011Q3

REPORT INFORMATION
  Report Type: 
  Country: None (occurrence: None)
  Receive Date: 20110803
  Receipt Date: 20110803
  Transmission Date: 20111222
  Serious: Yes (Other)
  Sender: FDA-Public Use
  Company Number: None

PATIENT
  Age: 32 Year
  Sex: Male
  Weight: 95.254 kg

DRUGS (2)
  1. STRATTERA [Suspect]
     Indication: AUTISM
     Dosage: 1 CAPSULE
     Route: 048
     Dates: start: 20110401, end: 20110731
  2. STRATTERA [Suspect]
     Indication: ATTENTION DEFICIT/HYPERACTIVITY DISORDER
     Dosage: 1 CAPSULE
     Route: 048
     Dates: start: 20110401, end: 20110731

REACTIONS (4)
  - HYPERHIDROSIS [None]
  - TESTICULAR DISORDER [None]
  - TESTICULAR ATROPHY [None]
  - MALAISE [None]
